FAERS Safety Report 10049350 (Version 2)
Quarter: 2014Q2

REPORT INFORMATION
  Report Type: Spontaneous
  Country: DE (occurrence: DE)
  Receive Date: 20140401
  Receipt Date: 20140401
  Transmission Date: 20141212
  Serious: Yes (Life-Threatening, Hospitalization, Other)
  Sender: FDA-Public Use
  Company Number: DE-ROCHE-1335318

PATIENT
  Age: 69 Year
  Sex: Male
  Weight: 78 kg

DRUGS (17)
  1. ROACTEMRA [Suspect]
     Indication: RHEUMATOID ARTHRITIS
     Route: 042
     Dates: start: 20131105, end: 20131105
  2. PREDNISONE [Suspect]
     Indication: RHEUMATOID ARTHRITIS
     Dosage: 12.5 TO 20 MG PER DAY
     Route: 048
     Dates: start: 1994
  3. CORTISONE [Concomitant]
  4. LOSARTAN [Concomitant]
     Indication: HYPERTENSION
     Route: 048
  5. HYDROCHLOROTHIAZIDE [Concomitant]
     Indication: HYPERTENSION
     Route: 048
  6. CLONIDINE [Concomitant]
     Indication: HYPERTENSION
     Route: 048
  7. BISOPROLOL [Concomitant]
     Indication: HYPERTENSION
     Route: 048
  8. SPIRONOLACTON [Concomitant]
     Indication: HYPERTENSION
     Route: 048
  9. ALLOPURINOL [Concomitant]
     Indication: HYPERURICAEMIA
     Route: 048
  10. PANTOPRAZOL [Concomitant]
     Indication: PROPHYLAXIS
     Route: 048
  11. METHOTREXAT [Concomitant]
     Indication: RHEUMATOID ARTHRITIS
     Route: 048
     Dates: end: 20131127
  12. METHOTREXAT [Concomitant]
     Route: 065
     Dates: start: 200110, end: 200205
  13. METHOTREXAT [Concomitant]
     Route: 065
     Dates: start: 200410
  14. CITALOPRAM [Concomitant]
     Indication: PAIN
     Route: 048
  15. DICLOFENAC [Concomitant]
     Indication: RHEUMATOID ARTHRITIS
     Route: 048
  16. OXYCODON [Concomitant]
     Indication: PAIN
     Route: 048
  17. COLECALCIFEROL [Concomitant]
     Indication: VITAMIN D DEFICIENCY
     Route: 048

REACTIONS (4)
  - Diverticular perforation [Recovered/Resolved with Sequelae]
  - Peritonitis [Recovered/Resolved with Sequelae]
  - Abscess [Recovered/Resolved with Sequelae]
  - Venous thrombosis [Recovering/Resolving]
